FAERS Safety Report 6793995-2 (Version None)
Quarter: 2010Q2

REPORT INFORMATION
  Report Type: 
  Country: None (occurrence: None)
  Receive Date: 20100624
  Receipt Date: 20060808
  Transmission Date: 20101027
  Serious: No
  Sender: FDA-Public Use
  Company Number: US-PFIZER INC-23100363

PATIENT
  Age: 69 Year
  Sex: Female

DRUGS (1)
  1. ARGATROBAN [Suspect]

REACTIONS (1)
  - INJECTION SITE REACTION [None]
